FAERS Safety Report 20368630 (Version 2)
Quarter: 2022Q1

REPORT INFORMATION
  Report Type: Spontaneous
  Country: US (occurrence: US)
  Receive Date: 20220124
  Receipt Date: 20220208
  Transmission Date: 20220423
  Serious: Yes (Other)
  Sender: FDA-Public Use
  Company Number: US-UCBSA-2022001610

PATIENT
  Sex: Male

DRUGS (2)
  1. NAYZILAM [Suspect]
     Active Substance: MIDAZOLAM
     Indication: Epilepsy
     Dosage: USED NAYZILAM ABOUT 3 TIMES
     Dates: start: 202108
  2. NAYZILAM [Suspect]
     Active Substance: MIDAZOLAM
     Indication: Seizure cluster

REACTIONS (3)
  - Foot operation [Recovered/Resolved]
  - Seizure cluster [Recovering/Resolving]
  - Oropharyngeal pain [Recovering/Resolving]

NARRATIVE: CASE EVENT DATE: 20210101
